FAERS Safety Report 23723209 (Version 1)
Quarter: 2024Q2

REPORT INFORMATION
  Report Type: Spontaneous
  Country: CN (occurrence: CN)
  Receive Date: 20240409
  Receipt Date: 20240409
  Transmission Date: 20240716
  Serious: Yes (Hospitalization)
  Sender: FDA-Public Use
  Company Number: CN-HUTCHMED LIMITED-HMP2024CN00725

PATIENT
  Age: 76 Year
  Sex: Female
  Weight: 69 kg

DRUGS (3)
  1. FRUQUINTINIB [Suspect]
     Active Substance: FRUQUINTINIB
     Indication: Colon cancer
     Dosage: 4 MILLIGRAM, QD
     Route: 048
     Dates: start: 20240316, end: 20240321
  2. FRUQUINTINIB [Suspect]
     Active Substance: FRUQUINTINIB
     Dosage: 2 MILLIGRAM, QD
     Route: 048
     Dates: start: 20240326
  3. SINTILIMAB [Concomitant]
     Active Substance: SINTILIMAB
     Indication: Colon cancer
     Dosage: 200 MILLIGRAM
     Route: 065
     Dates: start: 20240316, end: 20240316

REACTIONS (4)
  - Dizziness [Recovering/Resolving]
  - Asthenia [Recovering/Resolving]
  - Decreased appetite [Recovering/Resolving]
  - Underdose [Unknown]

NARRATIVE: CASE EVENT DATE: 20240321
